FAERS Safety Report 9599567 (Version 1)
Quarter: 2013Q4

REPORT INFORMATION
  Report Type: Spontaneous
  Country: US (occurrence: US)
  Receive Date: 20131004
  Receipt Date: 20131004
  Transmission Date: 20140711
  Serious: No
  Sender: FDA-Public Use
  Company Number: US-AMGEN-USASP2013030276

PATIENT
  Age: 54 Year
  Sex: Female
  Weight: 77.09 kg

DRUGS (12)
  1. ENBREL [Suspect]
     Indication: PRODUCT USED FOR UNKNOWN INDICATION
     Dosage: 50 MG, QWK
     Route: 058
  2. MELOXICAM [Concomitant]
     Dosage: 7.5 MG, UNK
  3. EFFEXOR [Concomitant]
     Dosage: 100 MG, UNK
  4. GEODON                             /01487002/ [Concomitant]
     Dosage: 20 MG, UNK
  5. METHOTREXATE [Concomitant]
     Dosage: 50 MG, UNK
  6. LAMICTAL [Concomitant]
     Dosage: 25 MG, UNK
  7. VITAMIN B12                        /00056201/ [Concomitant]
     Dosage: 1000 MUG, UNK
  8. FOLIC ACID [Concomitant]
     Dosage: 1 MG, UNK
  9. PRAVASTATIN [Concomitant]
     Dosage: 10 MG, UNK
  10. OMEPRAZOLE [Concomitant]
     Dosage: 20 MG, UNK
  11. CALCIUM [Concomitant]
     Dosage: 500 UNK, UNK
  12. ONE A DAY WOMEN^S [Concomitant]
     Dosage: UNK

REACTIONS (2)
  - Dizziness [Unknown]
  - Injection site bruising [Unknown]
